FAERS Safety Report 4866442-5 (Version None)
Quarter: 2005Q4

REPORT INFORMATION
  Report Type: 
  Country: None (occurrence: None)
  Receive Date: 20051227
  Receipt Date: 20051208
  Transmission Date: 20060501
  Serious: Yes (Hospitalization, Other)
  Sender: FDA-Public Use
  Company Number: US-MERCK-0512USA01563

PATIENT
  Age: 75 Year
  Sex: Female
  Weight: 66 kg

DRUGS (10)
  1. VIOXX [Suspect]
     Indication: PAIN
     Route: 048
     Dates: start: 20000425, end: 20020815
  2. CARDIZEM [Concomitant]
     Route: 065
  3. CLONAZEPAM [Concomitant]
     Route: 065
  4. LESCOL [Concomitant]
     Route: 065
  5. SYNTHROID [Concomitant]
     Route: 065
  6. INDERAL [Concomitant]
     Route: 065
  7. PRILOSEC [Concomitant]
     Route: 065
  8. HYDROCODONE BITARTRATE [Concomitant]
     Route: 065
  9. BACTRIM [Concomitant]
     Route: 065
  10. PROZAC [Concomitant]
     Route: 065

REACTIONS (2)
  - ARTHROPATHY [None]
  - ISCHAEMIC STROKE [None]
